FAERS Safety Report 8361466-8 (Version None)
Quarter: 2012Q2

REPORT INFORMATION
  Report Type: 
  Country: None (occurrence: None)
  Receive Date: 20120515
  Receipt Date: 20120509
  Transmission Date: 20120825
  Serious: Yes (Life-Threatening, Hospitalization, Other)
  Sender: FDA-Public Use
  Company Number: US-PFIZER INC-2012113967

PATIENT
  Sex: Male

DRUGS (1)
  1. BENEFIX [Suspect]
     Indication: FACTOR IX DEFICIENCY
     Dosage: UNK
     Dates: end: 20120101

REACTIONS (8)
  - NERVE COMPRESSION [None]
  - SMALL CELL LUNG CANCER STAGE UNSPECIFIED [None]
  - GAIT DISTURBANCE [None]
  - INTERVERTEBRAL DISC CALCIFICATION [None]
  - MUSCULAR WEAKNESS [None]
  - APHAGIA [None]
  - WEIGHT DECREASED [None]
  - INTERVERTEBRAL DISC PROTRUSION [None]
